FAERS Safety Report 9221907 (Version 1)
Quarter: 2013Q2

REPORT INFORMATION
  Report Type: Spontaneous
  Country: US (occurrence: None)
  Receive Date: 20130410
  Receipt Date: 20130410
  Transmission Date: 20140414
  Serious: Yes (Hospitalization)
  Sender: FDA-Public Use
  Company Number: None

PATIENT
  Age: 75 Year
  Sex: Female
  Weight: 100 kg

DRUGS (14)
  1. COUMADIN [Suspect]
     Indication: ATRIAL FIBRILLATION
     Dosage: 5MG   QHS X 3 WEEKS  PO?RECENT
     Route: 048
  2. CEFTAROLINE [Suspect]
     Indication: WOUND INFECTION
     Dosage: RECENT
  3. VANCOMYCIN [Suspect]
     Indication: WOUND INFECTION
     Dosage: RECENT
  4. DAPTOMYCIN [Suspect]
     Indication: WOUND INFECTION
     Dosage: RECENT
  5. FISH OIL [Concomitant]
  6. ATENOLOL [Concomitant]
  7. GLIPIZIDE [Concomitant]
  8. REGLAN [Concomitant]
  9. GABAPENTIN [Concomitant]
  10. PIOGLITAZONE [Concomitant]
  11. HCTZ [Concomitant]
  12. NOVOLOG SSI [Concomitant]
  13. LEVEMIR [Concomitant]
  14. NORCO [Concomitant]

REACTIONS (4)
  - Renal failure acute [None]
  - International normalised ratio increased [None]
  - Epistaxis [None]
  - Nausea [None]
